FAERS Safety Report 12463220 (Version 1)
Quarter: 2016Q2

REPORT INFORMATION
  Report Type: Spontaneous
  Country: FR (occurrence: FR)
  Receive Date: 20160614
  Receipt Date: 20160614
  Transmission Date: 20160815
  Serious: Yes (Death)
  Sender: FDA-Public Use
  Company Number: FR-ACCORD-041488

PATIENT
  Age: 80 Year
  Sex: Female

DRUGS (14)
  1. PANTOPRAZOLE/PANTOPRAZOLE SODIUM [Concomitant]
  2. ARIXTRA [Concomitant]
     Active Substance: FONDAPARINUX SODIUM
  3. FLUCONAZOLE. [Concomitant]
     Active Substance: FLUCONAZOLE
     Indication: FUNGAL INFECTION
  4. EMEND [Concomitant]
     Active Substance: APREPITANT
     Dates: start: 20160511, end: 20160513
  5. KETAMINE [Concomitant]
     Active Substance: KETAMINE
     Indication: ANALGESIC THERAPY
  6. HYOSCINE [Concomitant]
     Active Substance: SCOPOLAMINE
     Indication: ANALGESIC THERAPY
  7. DROPERIDOL/DROPERIDOL LACTATE [Concomitant]
     Indication: ANALGESIC THERAPY
  8. LARGACTIL [Concomitant]
     Active Substance: CHLORPROMAZINE
  9. LEVOFOLINATE [Concomitant]
     Active Substance: LEVOLEUCOVORIN CALCIUM
  10. METHYLPREDNISOLONE. [Concomitant]
     Active Substance: METHYLPREDNISOLONE
  11. FUROSEMIDE. [Concomitant]
     Active Substance: FUROSEMIDE
  12. FLUOROURACIL ACCORD [Suspect]
     Active Substance: FLUOROURACIL
     Indication: COLORECTAL CANCER METASTATIC
     Dosage: STRENGTH : 50 MG/ML, SOLUTION POUR PERFUSION, 550 MG BY INTRAVENOUS BOLUS
     Route: 042
     Dates: start: 20160511, end: 20160513
  13. OXALIPLATIN. [Concomitant]
     Active Substance: OXALIPLATIN
     Dosage: ONE SINGLE INTAKE
     Route: 042
     Dates: start: 20160511, end: 20160513
  14. MORPHINE [Concomitant]
     Active Substance: MORPHINE
     Indication: ANALGESIC THERAPY

REACTIONS (1)
  - Hyperammonaemic encephalopathy [Fatal]

NARRATIVE: CASE EVENT DATE: 20160513
